FAERS Safety Report 23088375 (Version 2)
Quarter: 2023Q4

REPORT INFORMATION
  Report Type: Spontaneous
  Country: US (occurrence: US)
  Receive Date: 20231020
  Receipt Date: 20231104
  Transmission Date: 20240110
  Serious: No
  Sender: FDA-Public Use
  Company Number: US-LUPIN PHARMACEUTICALS INC.-2023-09033

PATIENT

DRUGS (2)
  1. ALBUTEROL SULFATE [Suspect]
     Active Substance: ALBUTEROL SULFATE
     Indication: Chronic obstructive pulmonary disease
     Dosage: UNK, Q4H, 2 PUFFS EVERY 4 HOURS
     Dates: start: 20231006
  2. ALBUTEROL SULFATE [Suspect]
     Active Substance: ALBUTEROL SULFATE
     Indication: Lung neoplasm malignant
     Dosage: UNK, Q4H, 2 PUFFS EVERY 4 HOURS

REACTIONS (4)
  - Drug dose omission by device [Unknown]
  - Product use in unapproved indication [Unknown]
  - Device delivery system issue [Unknown]
  - No adverse event [Unknown]
